FAERS Safety Report 13554775 (Version 1)
Quarter: 2017Q2

REPORT INFORMATION
  Report Type: Spontaneous
  Country: CL (occurrence: CL)
  Receive Date: 20170517
  Receipt Date: 20170517
  Transmission Date: 20170830
  Serious: Yes (Other)
  Sender: FDA-Public Use
  Company Number: CL-SA-2017SA086356

PATIENT
  Age: 12 Year
  Sex: Male

DRUGS (2)
  1. INSULIN ASPART [Suspect]
     Active Substance: INSULIN ASPART
     Indication: DIABETES MELLITUS
     Route: 065
  2. INSULIN GLARGINE [Suspect]
     Active Substance: INSULIN GLARGINE
     Indication: DIABETES MELLITUS
     Route: 065

REACTIONS (12)
  - Diabetes mellitus [Unknown]
  - Aspartate aminotransferase abnormal [Unknown]
  - Mauriac syndrome [Unknown]
  - Gastric disorder [Unknown]
  - Endoscopy abnormal [Unknown]
  - Diabetic neuropathy [Unknown]
  - Drug ineffective [Unknown]
  - Hepatomegaly [Unknown]
  - Alanine aminotransferase abnormal [Unknown]
  - Growth retardation [Unknown]
  - Ultrasound abdomen abnormal [Unknown]
  - Hepatic steatosis [Unknown]
